FAERS Safety Report 17535817 (Version 1)
Quarter: 2020Q1

REPORT INFORMATION
  Report Type: Report from Study
  Country: None (occurrence: BR)
  Receive Date: 20200313
  Receipt Date: 20200313
  Transmission Date: 20200409
  Serious: Yes (Other)
  Sender: FDA-Public Use
  Company Number: BR-ABBVIE-20K-020-3310229-00

PATIENT
  Age: 48 Year
  Sex: Male
  Weight: 100 kg

DRUGS (3)
  1. DAFLON [Concomitant]
     Indication: FISTULA
     Route: 048
     Dates: start: 20191211
  2. RITALINA [Concomitant]
     Active Substance: METHYLPHENIDATE HYDROCHLORIDE
     Indication: ATTENTION DEFICIT/HYPERACTIVITY DISORDER
     Route: 048
     Dates: start: 2010
  3. HUMIRA [Suspect]
     Active Substance: ADALIMUMAB
     Indication: CROHN^S DISEASE
     Route: 058
     Dates: start: 20190725

REACTIONS (11)
  - Device physical property issue [Unknown]
  - Device related infection [Unknown]
  - Vitamin B complex deficiency [Unknown]
  - Arthralgia [Recovered/Resolved]
  - Iron binding capacity total abnormal [Unknown]
  - Vitamin D decreased [Unknown]
  - Serum ferritin abnormal [Unknown]
  - Fistula [Recovered/Resolved]
  - Weight increased [Recovering/Resolving]
  - Weight decreased [Unknown]
  - Arthralgia [Recovered/Resolved]

NARRATIVE: CASE EVENT DATE: 2019
